FAERS Safety Report 5171317-0 (Version None)
Quarter: 2006Q4

REPORT INFORMATION
  Report Type: 
  Country: None (occurrence: None)
  Receive Date: 20061208
  Receipt Date: 20061208
  Transmission Date: 20070319
  Serious: Yes (Other)
  Sender: FDA-Public Use
  Company Number: None

PATIENT
  Sex: Male
  Weight: 83.4619 kg

DRUGS (1)
  1. TERAZOSIN    5MG    UNKNOWN (2003) [Suspect]
     Indication: BENIGN PROSTATIC HYPERPLASIA
     Dosage: 5MG   ONCE EVERY DAY  P.O.
     Route: 048
     Dates: start: 20030701, end: 20030801

REACTIONS (6)
  - AGITATION [None]
  - ARTHRALGIA [None]
  - DIZZINESS [None]
  - DRY EYE [None]
  - NERVOUSNESS [None]
  - PHARMACEUTICAL PRODUCT COMPLAINT [None]
